FAERS Safety Report 10022182 (Version 2)
Quarter: 2014Q2

REPORT INFORMATION
  Report Type: Spontaneous
  Country: JP (occurrence: JP)
  Receive Date: 20140319
  Receipt Date: 20140402
  Transmission Date: 20141212
  Serious: Yes (Hospitalization)
  Sender: FDA-Public Use
  Company Number: JP-GLAXOSMITHKLINE-B0976842A

PATIENT
  Age: 74 Year
  Sex: Male

DRUGS (3)
  1. REVOLADE [Suspect]
     Indication: IMMUNE THROMBOCYTOPENIC PURPURA
     Dosage: 25MG PER DAY
     Route: 048
     Dates: start: 20140227, end: 20140311
  2. VANCOMYCIN HYDROCHLORIDE [Suspect]
     Indication: PRODUCT USED FOR UNKNOWN INDICATION
     Route: 065
  3. UNKNOWN DRUG [Concomitant]
     Dosage: 40MG PER DAY
     Route: 065

REACTIONS (3)
  - Bile duct obstruction [Unknown]
  - Bilirubin conjugated increased [Recovering/Resolving]
  - Blood bilirubin increased [Recovering/Resolving]
